FAERS Safety Report 12465266 (Version 1)
Quarter: 2016Q2

REPORT INFORMATION
  Report Type: Report from Study
  Country: ES (occurrence: ES)
  Receive Date: 20160614
  Receipt Date: 20160614
  Transmission Date: 20160815
  Serious: Yes (Life-Threatening, Hospitalization)
  Sender: FDA-Public Use
  Company Number: ES-CELGENEUS-ESP-2015081863

PATIENT
  Age: 76 Year
  Sex: Male
  Weight: 47.1 kg

DRUGS (6)
  1. ABRAXANE [Suspect]
     Active Substance: PACLITAXEL
     Indication: BREAST CANCER METASTATIC
     Dosage: 177 MG
     Route: 041
     Dates: start: 20150727, end: 20150810
  2. GEMCITABINE [Suspect]
     Active Substance: GEMCITABINE\GEMCITABINE HYDROCHLORIDE
     Dosage: 1422 MG
     Route: 041
  3. GEMCITABINE [Suspect]
     Active Substance: GEMCITABINE\GEMCITABINE HYDROCHLORIDE
     Indication: PANCREATIC CARCINOMA
     Dosage: 1422 MG
     Route: 041
     Dates: start: 20150727, end: 20150810
  4. ABRAXANE [Suspect]
     Active Substance: PACLITAXEL
     Dosage: 177 MG
     Route: 041
     Dates: start: 20150827, end: 20150907
  5. ABRAXANE [Suspect]
     Active Substance: PACLITAXEL
     Dosage: 177 MG
     Route: 041
  6. GEMCITABINE [Suspect]
     Active Substance: GEMCITABINE\GEMCITABINE HYDROCHLORIDE
     Dosage: 1422 MG
     Route: 041
     Dates: start: 20150827, end: 20150907

REACTIONS (1)
  - Neutropenic sepsis [Recovered/Resolved]

NARRATIVE: CASE EVENT DATE: 20150808
